FAERS Safety Report 6241243-4 (Version None)
Quarter: 2009Q2

REPORT INFORMATION
  Report Type: 
  Country: None (occurrence: None)
  Receive Date: 20090619
  Receipt Date: 20090619
  Transmission Date: 20091009
  Serious: Yes (Other)
  Sender: FDA-Public Use
  Company Number: None

PATIENT
  Age: 32 Year
  Sex: Female
  Weight: 72.1219 kg

DRUGS (1)
  1. MONISTAT 1 COMBINATION PACK [Suspect]
     Indication: FUNGAL INFECTION
     Dosage: SMALL AMOUNT 2 A DAY TOP
     Route: 061
     Dates: start: 20090613, end: 20090614

REACTIONS (4)
  - ACNE [None]
  - GAIT DISTURBANCE [None]
  - HYPERSENSITIVITY [None]
  - VULVOVAGINAL DISCOMFORT [None]
